FAERS Safety Report 4863936-3 (Version None)
Quarter: 2005Q4

REPORT INFORMATION
  Report Type: 
  Country: None (occurrence: None)
  Receive Date: 20051219
  Receipt Date: 20051212
  Transmission Date: 20060501
  Serious: Yes (Death, Hospitalization)
  Sender: FDA-Public Use
  Company Number: 2005-135623-NL

PATIENT
  Age: 71 Year
  Sex: Female

DRUGS (2)
  1. DANAPAROID SODIUM [Suspect]
     Indication: CARDIOVASCULAR DISORDER
     Dosage: INTRAVENOUS  NOS
     Route: 042
     Dates: start: 20050924, end: 20050928
  2. HEPARIN SODIUM [Suspect]
     Dosage: INTRAVENOUS NOS
     Route: 042
     Dates: start: 20050916, end: 20050924

REACTIONS (4)
  - HEPARIN-INDUCED THROMBOCYTOPENIA [None]
  - JAUNDICE [None]
  - LEG AMPUTATION [None]
  - PAIN [None]
